FAERS Safety Report 16363549 (Version 1)
Quarter: 2019Q2

REPORT INFORMATION
  Report Type: Spontaneous
  Country: GB (occurrence: US)
  Receive Date: 20190528
  Receipt Date: 20190528
  Transmission Date: 20190711
  Serious: Yes (Death, Life-Threatening, Hospitalization, Other)
  Sender: FDA-Public Use
  Company Number: GB-MYLANLABS-2019M1048583

PATIENT
  Age: 76 Year
  Sex: Male

DRUGS (4)
  1. PREDNISONE. [Suspect]
     Active Substance: PREDNISONE
     Dosage: 60 MG,QD
     Route: 065
  2. SULPHAMETHOXAZOLE/TRIMETHOPRIM [Suspect]
     Active Substance: SULFAMETHOXAZOLE\TRIMETHOPRIM
     Indication: PNEUMOCYSTIS JIROVECII PNEUMONIA
     Dosage: UNK UNK,UNK
     Route: 042
  3. PREDNISONE. [Suspect]
     Active Substance: PREDNISONE
     Indication: COLITIS ULCERATIVE
     Dosage: 20 MG,QD
     Route: 065
  4. METHYLPREDNISOLONE. [Suspect]
     Active Substance: METHYLPREDNISOLONE
     Indication: PNEUMOCYSTIS JIROVECII PNEUMONIA
     Dosage: UNK UNK,UNK
     Route: 065

REACTIONS (12)
  - Pneumocystis jirovecii pneumonia [Unknown]
  - Clostridium difficile infection [Unknown]
  - Hypotension [Fatal]
  - Multiple organ dysfunction syndrome [Fatal]
  - Anaemia [Unknown]
  - Computerised tomogram thorax abnormal [Unknown]
  - PO2 decreased [Fatal]
  - Shock [Fatal]
  - Respiratory failure [Fatal]
  - Hypoxia [Fatal]
  - Rectal haemorrhage [Unknown]
  - Drug ineffective [Unknown]
